FAERS Safety Report 15338832 (Version 1)
Quarter: 2018Q3

REPORT INFORMATION
  Report Type: Spontaneous
  Country: FR (occurrence: FR)
  Receive Date: 20180831
  Receipt Date: 20180831
  Transmission Date: 20181010
  Serious: Yes (Hospitalization)
  Sender: FDA-Public Use
  Company Number: FR-EMD SERONO-E2B_90057294

PATIENT
  Age: 34 Year
  Sex: Female

DRUGS (4)
  1. GANIRELIX ACETATE. [Suspect]
     Active Substance: GANIRELIX ACETATE
     Indication: IN VITRO FERTILISATION
     Dosage: 0.25 MG/0.5 ML
     Route: 058
     Dates: start: 20180210, end: 20180212
  2. OVITRELLE [Suspect]
     Active Substance: CHORIOGONADOTROPIN ALFA
     Indication: IN VITRO FERTILISATION
     Route: 058
     Dates: start: 20180213, end: 20180213
  3. PROVAMES [Suspect]
     Active Substance: ESTRADIOL
     Indication: IN VITRO FERTILISATION
     Route: 048
     Dates: start: 20180202, end: 20180202
  4. GONAL?F [Suspect]
     Active Substance: FOLLITROPIN
     Indication: IN VITRO FERTILISATION
     Route: 058
     Dates: start: 20180202, end: 20180212

REACTIONS (1)
  - Optic neuritis [Recovering/Resolving]

NARRATIVE: CASE EVENT DATE: 20180804
